FAERS Safety Report 8581498-4 (Version None)
Quarter: 2012Q3

REPORT INFORMATION
  Report Type: 
  Country: None (occurrence: None)
  Receive Date: 20120809
  Receipt Date: 20120807
  Transmission Date: 20120928
  Serious: No
  Sender: FDA-Public Use
  Company Number: US-PFIZER INC-2012029248

PATIENT
  Sex: Male

DRUGS (1)
  1. CELEBREX [Suspect]
     Dosage: UNK

REACTIONS (7)
  - MUSCULOSKELETAL DISORDER [None]
  - PAIN [None]
  - ARTHRITIS [None]
  - MEMORY IMPAIRMENT [None]
  - JOINT STIFFNESS [None]
  - POLYURIA [None]
  - FATIGUE [None]
